FAERS Safety Report 9200086 (Version 2)
Quarter: 2013Q2

REPORT INFORMATION
  Report Type: Spontaneous
  Country: US (occurrence: US)
  Receive Date: 20130329
  Receipt Date: 20130620
  Transmission Date: 20140414
  Serious: Yes (Death, Other)
  Sender: FDA-Public Use
  Company Number: US-PERRIGO-13US003069

PATIENT
  Age: 29 Year
  Sex: Female
  Weight: 49.89 kg

DRUGS (5)
  1. DOXYLAMINE SUCCINATE 25 MG 441 [Suspect]
     Indication: SLEEP DISORDER
     Dosage: 550 MG OVER 6 HOURS
     Route: 048
     Dates: start: 20100503, end: 20100503
  2. MULTIVITAMIN [Concomitant]
     Indication: SUPPLEMENTATION THERAPY
     Dosage: UNKNOWN, UNKNOWN
     Route: 048
  3. VITAMIN C [Concomitant]
     Indication: SUPPLEMENTATION THERAPY
     Dosage: 1000 MG, QD
     Route: 048
  4. FLAXSEED OIL [Concomitant]
     Indication: SUPPLEMENTATION THERAPY
     Dosage: UNKNOWN, UNKNOWN
     Route: 048
  5. CONTRACEPTIVES [Concomitant]
     Indication: DYSMENORRHOEA
     Dosage: UNKNOWN, UNKNOWN
     Route: 065

REACTIONS (3)
  - Overdose [Fatal]
  - Cardio-respiratory arrest [Fatal]
  - Hallucination [Unknown]
